FAERS Safety Report 15936894 (Version 1)
Quarter: 2019Q1

REPORT INFORMATION
  Report Type: Spontaneous
  Country: BR (occurrence: BR)
  Receive Date: 20190208
  Receipt Date: 20190208
  Transmission Date: 20190417
  Serious: Yes (Other)
  Sender: FDA-Public Use
  Company Number: BR-TEVA-2019-BR-1008499

PATIENT
  Age: 67 Year
  Sex: Female
  Weight: 49 kg

DRUGS (4)
  1. OXALIPLATIN. [Suspect]
     Active Substance: OXALIPLATIN
     Indication: PANCREATIC CARCINOMA
     Dosage: COMPLETED 8TH CYCLE; ADMINISTERED AT AN INTERVAL OF 14 DAYS
     Route: 042
     Dates: start: 20180823
  2. CYMBALTA [Concomitant]
     Active Substance: DULOXETINE HYDROCHLORIDE
     Dosage: 30 MILLIGRAM DAILY;
  3. RIVOTRIL [Concomitant]
     Active Substance: CLONAZEPAM
     Dosage: .5 MILLIGRAM DAILY;
  4. ASEA HCT 20 MG [Concomitant]
     Dosage: 20 MILLIGRAM DAILY;

REACTIONS (2)
  - Toxicity to various agents [Recovering/Resolving]
  - Asthenia [Recovering/Resolving]

NARRATIVE: CASE EVENT DATE: 20181226
